FAERS Safety Report 13340296 (Version 1)
Quarter: 2017Q1

REPORT INFORMATION
  Report Type: Spontaneous
  Country: GB (occurrence: GB)
  Receive Date: 20170316
  Receipt Date: 20170316
  Transmission Date: 20170428
  Serious: Yes (Hospitalization)
  Sender: FDA-Public Use
  Company Number: GB-UCBSA-2017009702

PATIENT
  Sex: Male

DRUGS (2)
  1. NEUPRO [Suspect]
     Active Substance: ROTIGOTINE
     Dosage: 6 PATCHES ON SKIN OVER 24 HOURS
  2. NEUPRO [Suspect]
     Active Substance: ROTIGOTINE
     Indication: PRODUCT USED FOR UNKNOWN INDICATION
     Dosage: 16 MG, ONCE DAILY (QD); STRENGTH: 8 MG/24 H
     Route: 062

REACTIONS (4)
  - Overdose [Unknown]
  - Unresponsive to stimuli [Recovering/Resolving]
  - Hypotension [Unknown]
  - Somnolence [Recovering/Resolving]
